FAERS Safety Report 4615221-2 (Version None)
Quarter: 2005Q1

REPORT INFORMATION
  Report Type: 
  Country: None (occurrence: None)
  Receive Date: 20050310
  Receipt Date: 20040831
  Transmission Date: 20050727
  Serious: Yes (Other)
  Sender: FDA-Public Use
  Company Number: 200510223BBE

PATIENT
  Sex: Male

DRUGS (14)
  1. KONYNE [Suspect]
     Indication: FACTOR IX DEFICIENCY
     Dates: start: 19810101, end: 19820101
  2. KONYNE [Suspect]
     Indication: FACTOR IX DEFICIENCY
     Dates: start: 19840101, end: 19850101
  3. KONYNE [Suspect]
     Indication: FACTOR IX DEFICIENCY
     Dates: start: 19830101
  4. KONYNE [Suspect]
     Indication: FACTOR IX DEFICIENCY
     Dates: start: 19870101, end: 19880101
  5. KONYNE [Suspect]
     Indication: FACTOR IX DEFICIENCY
     Dates: start: 19800101
  6. KONYNE [Suspect]
     Indication: FACTOR IX DEFICIENCY
     Dates: start: 19860101
  7. PROPLEX [Suspect]
     Dates: start: 19830101
  8. ALPHA (FACTOR IX) (FACTOR IX) [Suspect]
     Dates: start: 19860101
  9. ALPHA (FACTOR IX) (FACTOR IX) [Suspect]
     Dates: start: 19890101
  10. ALPHA (FACTOR IX) (FACTOR IX) [Suspect]
     Dates: start: 19900101
  11. ARMOUR (FACTOR IX) (FACTOR IX) [Suspect]
     Dates: start: 19860101
  12. HYLAND(FACTOR 1X) [Suspect]
     Dates: start: 19870101, end: 19880101
  13. HYLAND(FACTOR 1X) [Suspect]
     Dates: start: 19860101
  14. HYLAND(FACTOR 1X) [Suspect]
     Dates: start: 19890101

REACTIONS (1)
  - HEPATITIS C VIRUS [None]
